FAERS Safety Report 12456470 (Version 1)
Quarter: 2016Q2

REPORT INFORMATION
  Report Type: Spontaneous
  Country: US (occurrence: US)
  Receive Date: 20160610
  Receipt Date: 20160610
  Transmission Date: 20160815
  Serious: No
  Sender: FDA-Public Use
  Company Number: US-PFIZER INC-2016264341

PATIENT
  Age: 60 Year
  Sex: Male
  Weight: 149.6 kg

DRUGS (3)
  1. ARTHROTEC [Suspect]
     Active Substance: DICLOFENAC SODIUM\MISOPROSTOL
     Indication: ARTHRITIS
     Dosage: 75 MG, 2X/DAY
     Route: 048
  2. LOSARTAN. [Concomitant]
     Active Substance: LOSARTAN
     Indication: HYPERTENSION
     Dosage: UNK UNK, 1X/DAY
  3. HYDROCODONE [Concomitant]
     Active Substance: HYDROCODONE
     Indication: HYPERTENSION
     Dosage: 25 MG, DAILY

REACTIONS (1)
  - Drug dose omission [Not Recovered/Not Resolved]

NARRATIVE: CASE EVENT DATE: 20160511
